FAERS Safety Report 19145721 (Version 2)
Quarter: 2021Q2

REPORT INFORMATION
  Report Type: Report from Study
  Country: US (occurrence: US)
  Receive Date: 20210416
  Receipt Date: 20210519
  Transmission Date: 20210717
  Serious: Yes (Other)
  Sender: FDA-Public Use
  Company Number: US-EMD SERONO-9207634

PATIENT
  Age: 48 Year
  Sex: Female

DRUGS (1)
  1. MAVENCLAD [Suspect]
     Active Substance: CLADRIBINE
     Indication: MULTIPLE SCLEROSIS
     Dosage: FIRST YEAR THERAPY
     Route: 048
     Dates: start: 20191221

REACTIONS (4)
  - Appendicectomy [Unknown]
  - Red blood cell count decreased [Unknown]
  - Uterine leiomyoma [Unknown]
  - Ovarian cyst [Unknown]

NARRATIVE: CASE EVENT DATE: 202012
